FAERS Safety Report 20976778 (Version 1)
Quarter: 2022Q2

REPORT INFORMATION
  Report Type: Report from Study
  Country: US (occurrence: US)
  Receive Date: 20220617
  Receipt Date: 20220617
  Transmission Date: 20220720
  Serious: Yes (Other)
  Sender: FDA-Public Use
  Company Number: US-TORRENT-00011903

PATIENT
  Age: 45 Year
  Sex: Female

DRUGS (1)
  1. MINOCYCLINE [Suspect]
     Active Substance: MINOCYCLINE HYDROCHLORIDE
     Indication: Abscess
     Dosage: 100 MG A DAY, PAST 2 YEARS
     Route: 065

REACTIONS (2)
  - Ochronosis [Unknown]
  - Arthralgia [Unknown]
